FAERS Safety Report 16509381 (Version 1)
Quarter: 2019Q3

REPORT INFORMATION
  Report Type: Spontaneous
  Country: IS (occurrence: IS)
  Receive Date: 20190702
  Receipt Date: 20190702
  Transmission Date: 20191004
  Serious: Yes (Other)
  Sender: FDA-Public Use
  Company Number: IS-TEVA-2019-IS-1071309

PATIENT
  Age: 60 Year
  Sex: Female

DRUGS (1)
  1. DAREN TOFLUR 5 MG (ENALAPRIL) [Suspect]
     Active Substance: ENALAPRIL MALEATE
     Indication: HYPERTENSION
     Dosage: 5 MILLIGRAM DAILY; 1 X 1
     Route: 048
     Dates: start: 20190406, end: 20190416

REACTIONS (15)
  - Dyspnoea [Recovered/Resolved]
  - Nausea [Recovered/Resolved]
  - Seizure [Recovered/Resolved]
  - Impaired driving ability [Recovered/Resolved]
  - Anxiety [Recovered/Resolved]
  - Hypoaesthesia [Recovered/Resolved]
  - Migraine [Recovered/Resolved]
  - Cough [Recovered/Resolved]
  - Visual impairment [Recovered/Resolved]
  - Aphthous ulcer [Recovered/Resolved]
  - Dizziness [Recovered/Resolved]
  - Dermatitis [Recovered/Resolved]
  - Tinnitus [Recovered/Resolved]
  - Gastrooesophageal reflux disease [Recovered/Resolved]
  - Disturbance in attention [Recovered/Resolved]

NARRATIVE: CASE EVENT DATE: 20190406
